FAERS Safety Report 15855368 (Version 1)
Quarter: 2019Q1

REPORT INFORMATION
  Report Type: Spontaneous
  Country: US (occurrence: US)
  Receive Date: 20190122
  Receipt Date: 20190122
  Transmission Date: 20190417
  Serious: Yes (Hospitalization)
  Sender: FDA-Public Use
  Company Number: US-GALDERMA-US19002884

PATIENT
  Age: 21 Year
  Sex: Female

DRUGS (5)
  1. DIFFERIN GEL [Suspect]
     Active Substance: ADAPALENE
     Indication: ACNE
     Dosage: 0.1%
     Route: 061
     Dates: start: 20180210
  2. ALBUTEROL HFA [Concomitant]
     Active Substance: ALBUTEROL SULFATE
  3. TRAMADOL. [Concomitant]
     Active Substance: TRAMADOL
  4. TYLENOL [Concomitant]
     Active Substance: ACETAMINOPHEN
     Dosage: 1-2 AS NEEDED FOR PAIN
  5. MOTRIN [Concomitant]
     Active Substance: IBUPROFEN

REACTIONS (33)
  - Skin warm [Recovered/Resolved]
  - Dry skin [Recovered/Resolved]
  - Pain of skin [Recovered/Resolved]
  - Rash [Recovered/Resolved]
  - Swelling face [Recovered/Resolved]
  - Dizziness [Recovered/Resolved]
  - Skin exfoliation [Recovered/Resolved]
  - Tachycardia [Recovered/Resolved]
  - Nausea [Recovered/Resolved]
  - Vomiting [Recovered/Resolved]
  - Hypokalaemia [Recovered/Resolved]
  - Chemical burn of skin [Recovered/Resolved]
  - Dyspnoea [Recovered/Resolved]
  - Palpitations [Recovered/Resolved]
  - Skin injury [Not Recovered/Not Resolved]
  - Hypersensitivity [Recovered/Resolved]
  - Chest pain [Recovered/Resolved]
  - Burns first degree [Recovered/Resolved]
  - Skin plaque [Recovered/Resolved]
  - Flushing [Not Recovered/Not Resolved]
  - Skin tightness [Recovered/Resolved]
  - Supraventricular tachycardia [Recovered/Resolved]
  - Blister [Recovered/Resolved]
  - Atrial flutter [Recovered/Resolved]
  - Haemorrhage [Recovered/Resolved]
  - Madarosis [Recovered/Resolved]
  - Erythema [Not Recovered/Not Resolved]
  - Skin weeping [Recovered/Resolved]
  - Dermatitis contact [Recovered/Resolved]
  - Insomnia [Recovered/Resolved]
  - Pruritus [Recovered/Resolved]
  - Stress [Recovered/Resolved]
  - Syncope [Recovered/Resolved]

NARRATIVE: CASE EVENT DATE: 2018
